FAERS Safety Report 21615824 (Version 1)
Quarter: 2022Q4

REPORT INFORMATION
  Report Type: Spontaneous
  Country: NL (occurrence: NL)
  Receive Date: 20221118
  Receipt Date: 20221118
  Transmission Date: 20230112
  Serious: Yes (Life-Threatening, Hospitalization)
  Sender: FDA-Public Use
  Company Number: None

PATIENT
  Sex: Male
  Weight: 77.6 kg

DRUGS (15)
  1. LENALIDOMIDE [Suspect]
     Active Substance: LENALIDOMIDE
     Indication: Plasma cell myeloma
     Dosage: 15 MILLIGRAM DAILY; 1 X PER DAY 1 PIECE,UNIT DOSE :15 MG FORM STRENGTH : 15MG ,BRAND NAME NOT SPECIF
     Dates: start: 20220414
  2. METHYLCELLULOSES [Concomitant]
     Active Substance: METHYLCELLULOSES
     Indication: Product used for unknown indication
     Dosage: 5 MG/ML (MILLIGRAM PER MILLILITER) ,BRAND NAME NOT SPECIFIED ,THERAPY START AND END DATE :ASKU
  3. SULFAMETHOXAZOLE\TRIMETHOPRIM [Concomitant]
     Active Substance: SULFAMETHOXAZOLE\TRIMETHOPRIM
     Indication: Product used for unknown indication
     Dosage: 80/400 MG (MILLIGRAM) , 480 TABLET  80/400MG / BRAND NAME NOT SPECIFIED ,THERAPY START AND END DATE
  4. VITAMIN D3 [Concomitant]
     Active Substance: CHOLECALCIFEROL
     Indication: Product used for unknown indication
     Dosage: 25MCG,THERAPY START AND END DATE :ASKU
  5. ACETAMINOPHEN [Concomitant]
     Active Substance: ACETAMINOPHEN
     Indication: Product used for unknown indication
     Dosage: 500MG(MILLIGRAM),FORM STRENGTH :500MG, BRAND NAME NOT SPECIFIED ,THERAPY START AND END DATE:ASKU
  6. PANTOPRAZOLE SODIUM [Concomitant]
     Active Substance: PANTOPRAZOLE SODIUM
     Indication: Product used for unknown indication
     Dosage: 40 MG (MILLIGRAM),MSR ,FORM STRENGTH :40MG,BRAND NAME NOT SPECIFIED ,THERAPY START AND END DATE: ASK
  7. PILOCARPINE [Concomitant]
     Active Substance: PILOCARPINE
     Indication: Product used for unknown indication
     Dosage: 2,5 MG (MILLIGRAM),FORM STRENGTH :2,5MG,BRAND NAME NOT SPECIFIED,THERAPY START AND END DATE:ASKU
  8. SPIRONOLACTONE [Concomitant]
     Active Substance: SPIRONOLACTONE
     Indication: Product used for unknown indication
     Dosage: 25 MG (MILLIGRAM),FORM STRENGTH:25MG, BRAND NAME NOT SPECIFIED ,THERAPY START AND END DATE :ASKU
  9. PREDNISOLONE [Concomitant]
     Active Substance: PREDNISOLONE
     Indication: Product used for unknown indication
     Dosage: 5 MG(MILLIGRAM),FORM STRENGTH :5MG, BRAND NAME NOT SPECIFIED,THERAPY START AND END DATE:ASKU
  10. ALLOPURINOL [Concomitant]
     Active Substance: ALLOPURINOL
     Indication: Product used for unknown indication
     Dosage: 300MG (MILLIGRAM) ,FORM STRENGTH :300MG ,BRAND NAME NOT SPECIFIED ,THERAPY START AND END DATE:ASKU
  11. NIFEDIPINE [Concomitant]
     Active Substance: NIFEDIPINE
     Indication: Product used for unknown indication
     Dosage: 30 MG (MILLIGRAM),MGA,FORM STRENGTH :30MG,BRAND NAME NOT SPECIFIED ,THERAPY START AND END  DATE:ASKU
  12. FOLIC ACID [Concomitant]
     Active Substance: FOLIC ACID
     Indication: Product used for unknown indication
     Dosage: 0,5 MG (MILLIGRAM),FORM STRENGTH :0.5MG , BRAND NAME NOT SPECIFIED ,THERAPY START AND END DATE:ASKU
  13. PAMIDRONIC ACID [Concomitant]
     Active Substance: PAMIDRONIC ACID
     Indication: Product used for unknown indication
     Dosage: 3 MG/ML (MILLIGRAM PER MILLILITER),INFOPL CONC (5-WATER),FORM STRENGTH:3MG/ML ,BRAND NAME NOT SPECIF
  14. METOPROLOL [Concomitant]
     Active Substance: METOPROLOL
     Indication: Product used for unknown indication
     Dosage: 100 MG (MILLIGRAM),FORM STRENGTH :100MG ,BRAND NAME NOT SPECIFIED ,THERAPY START AND END DATE:ASKU
  15. VALACYCLOVIR HYDROCHLORIDE [Concomitant]
     Active Substance: VALACYCLOVIR HYDROCHLORIDE
     Indication: Product used for unknown indication
     Dosage: 500 MG (MILLIGRAM) ,FORM STRENGTH :500MG,BRAND NAME NOT SPECIFIED ,THERAPY START AND END DATE:ASKU

REACTIONS (4)
  - Swelling [Not Recovered/Not Resolved]
  - Parotid gland enlargement [Not Recovered/Not Resolved]
  - Salivary gland pain [Unknown]
  - Aptyalism [Unknown]
